FAERS Safety Report 18605551 (Version 11)
Quarter: 2021Q2

REPORT INFORMATION
  Report Type: Report from Study
  Country: AU (occurrence: AU)
  Receive Date: 20201211
  Receipt Date: 20210527
  Transmission Date: 20210717
  Serious: Yes (Hospitalization)
  Sender: FDA-Public Use
  Company Number: AU-GLAXOSMITHKLINE-AU2020GSK241904

PATIENT
  Age: 80 Year
  Sex: Female
  Weight: 66.9 kg

DRUGS (12)
  1. PARACETAMOL [Concomitant]
     Active Substance: ACETAMINOPHEN
     Indication: ARTHRALGIA
     Dosage: 1 G, AS REQUIRED
     Route: 048
     Dates: start: 20201119
  2. COVERSYL [Concomitant]
     Active Substance: PERINDOPRIL
     Indication: HYPERTENSION
     Dosage: 5 MG, QD
     Route: 048
     Dates: start: 201112
  3. GASTROSTOP (LOPERAMIDE) [Concomitant]
     Indication: DIARRHOEA
     Dosage: 2 MG, AS REQUIRED
     Route: 048
     Dates: start: 2019
  4. VANCOMYCIN [Concomitant]
     Active Substance: VANCOMYCIN
     Indication: PYREXIA
     Dosage: 1.75 G,ONCE
     Route: 042
     Dates: start: 20201214, end: 20201214
  5. FILGRASTIM [Concomitant]
     Active Substance: FILGRASTIM
     Indication: NEUTROPENIA
     Dosage: 300 UMOL, 1 TIME PER WEEK
     Route: 058
     Dates: start: 20210107
  6. BELANTAMAB MAFODOTIN. [Suspect]
     Active Substance: BELANTAMAB MAFODOTIN
     Indication: PLASMA CELL MYELOMA
     Dosage: CYC 1 DAY 1
     Route: 042
     Dates: end: 20201203
  7. BACTRIM TABLET [Concomitant]
     Indication: PROPHYLAXIS
     Dosage: 1 DF, Z (2 TIMES PER WEEK)
     Route: 048
     Dates: start: 2015
  8. VANCOMYCIN [Concomitant]
     Active Substance: VANCOMYCIN
     Dosage: 500 MG, BID
     Route: 042
     Dates: start: 20201215, end: 20201216
  9. PARACETAMOL [Concomitant]
     Active Substance: ACETAMINOPHEN
     Indication: PYREXIA
     Dosage: 1 G, ONCE
     Route: 048
     Dates: start: 20201203, end: 20201203
  10. PARACETAMOL [Concomitant]
     Active Substance: ACETAMINOPHEN
     Indication: BACK PAIN
  11. VALACICLOVIR [Concomitant]
     Active Substance: VALACYCLOVIR HYDROCHLORIDE
     Indication: PROPHYLAXIS
     Dosage: 500 MG, QD
     Route: 048
     Dates: start: 2020
  12. FEXOFENADINE [Concomitant]
     Active Substance: FEXOFENADINE HYDROCHLORIDE
     Indication: SEASONAL ALLERGY
     Dosage: 180 MG, AS REQUIRED
     Route: 048
     Dates: start: 2020

REACTIONS (1)
  - Cytokine release syndrome [Recovered/Resolved]

NARRATIVE: CASE EVENT DATE: 20201203
